FAERS Safety Report 8036310-9 (Version None)
Quarter: 2012Q1

REPORT INFORMATION
  Report Type: 
  Country: None (occurrence: None)
  Receive Date: 20120105
  Receipt Date: 20111227
  Transmission Date: 20120608
  Serious: Yes (Hospitalization)
  Sender: FDA-Public Use
  Company Number: AUR-APL-2012-00087

PATIENT
  Age: 75 Year
  Sex: Female

DRUGS (17)
  1. METHOTREXATE [Concomitant]
  2. CELEBREX [Concomitant]
  3. HYPROMELLOSE (HYPROMELLOSE) [Concomitant]
  4. FOLIC ACID [Concomitant]
  5. FOSAMAX [Concomitant]
  6. BISOPROLOL FUMARATE [Suspect]
     Indication: ATRIAL FIBRILLATION
     Dosage: 1.25 MG (1.25 MG, 1 IN 1 D), UNKNOWN
     Dates: start: 20110701
  7. BISOPROLOL FUMARATE [Suspect]
     Indication: ATRIAL FIBRILLATION
     Dosage: 1.25 MG (1.25 MG, 1 IN 1 D), UNKNOWN
     Dates: start: 20110928
  8. AMITRIPTYLINE HCL [Concomitant]
  9. FERROUS SULFATE TAB [Concomitant]
  10. FUROSEMIDE [Concomitant]
  11. RAMIPRIL [Concomitant]
  12. OXYTETRACYCLINE [Concomitant]
  13. REMICADE [Suspect]
     Indication: PRODUCT USED FOR UNKNOWN INDICATION
     Dosage: INTRAVENOUS
     Route: 042
     Dates: start: 20041021
  14. CALCIUM CARBONATE [Concomitant]
  15. DILTIAZEM [Suspect]
     Indication: HYPERTENSION
  16. ASPIRIN (ACENTYSALICYLIC ACID) [Concomitant]
  17. VITAMIN D [Concomitant]

REACTIONS (8)
  - NAUSEA [None]
  - BLOOD PRESSURE DECREASED [None]
  - ATRIAL FIBRILLATION [None]
  - PRESYNCOPE [None]
  - HEADACHE [None]
  - DIZZINESS [None]
  - SINUS BRADYCARDIA [None]
  - VIRAL INFECTION [None]
